FAERS Safety Report 7157046-2 (Version None)
Quarter: 2010Q4

REPORT INFORMATION
  Report Type: 
  Country: None (occurrence: None)
  Receive Date: 20101214
  Receipt Date: 20091231
  Transmission Date: 20110411
  Serious: No
  Sender: FDA-Public Use
  Company Number: US-ASTRAZENECA-2010SE00028

PATIENT
  Age: 54 Year
  Sex: Female
  Weight: 90.7 kg

DRUGS (6)
  1. CRESTOR [Suspect]
     Route: 048
     Dates: start: 20080101
  2. CLONAZEPAM [Concomitant]
  3. WELLBUTRIN [Concomitant]
     Indication: ANTIDEPRESSANT THERAPY
  4. LEVOTHYROXINE [Concomitant]
  5. SITALOPRAM [Concomitant]
  6. VITAMIN D [Concomitant]

REACTIONS (4)
  - BODY TEMPERATURE INCREASED [None]
  - HYPOAESTHESIA [None]
  - PAIN [None]
  - PARAESTHESIA [None]
